FAERS Safety Report 9601741 (Version 1)
Quarter: 2013Q4

REPORT INFORMATION
  Report Type: Spontaneous
  Country: US (occurrence: US)
  Receive Date: 20131007
  Receipt Date: 20131007
  Transmission Date: 20140711
  Serious: Yes (Other)
  Sender: FDA-Public Use
  Company Number: US-RB-058511-13

PATIENT
  Age: 62 Year
  Sex: Female

DRUGS (1)
  1. MUCINEX - UNIDENTIFIED PRODUCT [Suspect]
     Indication: PRODUCT USED FOR UNKNOWN INDICATION

REACTIONS (2)
  - Wheezing [Unknown]
  - Ill-defined disorder [Unknown]
